FAERS Safety Report 21623878 (Version 2)
Quarter: 2023Q2

REPORT INFORMATION
  Report Type: Report from Study
  Country: CN (occurrence: CN)
  Receive Date: 20221121
  Receipt Date: 20230615
  Transmission Date: 20230721
  Serious: Yes (Hospitalization)
  Sender: FDA-Public Use
  Company Number: CN-KARYOPHARM-2022KPT001418

PATIENT
  Age: 55 Year
  Sex: Male
  Weight: 71.8 kg

DRUGS (7)
  1. SELINEXOR [Suspect]
     Active Substance: SELINEXOR
     Indication: Diffuse large B-cell lymphoma
     Dosage: 60 MG, CYCLIC
     Route: 048
     Dates: start: 20220825, end: 20221112
  2. RITUXIMAB [Suspect]
     Active Substance: RITUXIMAB
     Indication: Diffuse large B-cell lymphoma
     Dosage: 700 MG, CYCLIC
     Route: 041
     Dates: start: 20220825, end: 20221112
  3. CYCLOPHOSPHAMIDE [Suspect]
     Active Substance: CYCLOPHOSPHAMIDE
     Indication: Diffuse large B-cell lymphoma
     Dosage: 1.3 G, CYCLIC
     Route: 041
     Dates: start: 20220825, end: 20221112
  4. EPIRUBICIN [Suspect]
     Active Substance: EPIRUBICIN
     Indication: Diffuse large B-cell lymphoma
     Dosage: 129 MG, CYCLIC
     Route: 041
     Dates: start: 20220825, end: 20221112
  5. VINCRISTINE [Suspect]
     Active Substance: VINCRISTINE
     Indication: Diffuse large B-cell lymphoma
     Dosage: 2 MG, CYCLIC
     Route: 042
     Dates: start: 20220825, end: 20221112
  6. PREDNISONE [Suspect]
     Active Substance: PREDNISONE
     Indication: Diffuse large B-cell lymphoma
     Dosage: 100 MG, CYCLIC
     Route: 048
     Dates: start: 20220825, end: 20221112
  7. MEGESTROL [Concomitant]
     Active Substance: MEGESTROL
     Dosage: UNK

REACTIONS (3)
  - White blood cell count decreased [Recovered/Resolved]
  - Neutrophil count decreased [Recovered/Resolved]
  - Pneumonia [Recovered/Resolved]

NARRATIVE: CASE EVENT DATE: 20221113
